FAERS Safety Report 8307696-2 (Version None)
Quarter: 2012Q2

REPORT INFORMATION
  Report Type: 
  Country: None (occurrence: None)
  Receive Date: 20120424
  Receipt Date: 20120418
  Transmission Date: 20120825
  Serious: Yes (Hospitalization, Other)
  Sender: FDA-Public Use
  Company Number: DE-MEDIMMUNE-MEDI-0015407

PATIENT
  Sex: Female

DRUGS (2)
  1. SYNAGIS [Suspect]
     Route: 030
     Dates: start: 20110914, end: 20120321
  2. SYNAGIS [Suspect]
     Route: 030
     Dates: start: 20120418, end: 20120418

REACTIONS (6)
  - RESPIRATORY SYNCYTIAL VIRUS INFECTION [None]
  - RHONCHI [None]
  - URINARY TRACT INFECTION [None]
  - ASPIRATION [None]
  - GENERAL PHYSICAL HEALTH DETERIORATION [None]
  - DYSPNOEA [None]
